FAERS Safety Report 8716305 (Version 6)
Quarter: 2013Q1

REPORT INFORMATION
  Report Type: Spontaneous
  Country: US (occurrence: US)
  Receive Date: 20120810
  Receipt Date: 20130314
  Transmission Date: 20140127
  Serious: Yes (Congenital Anomaly)
  Sender: FDA-Public Use
  Company Number: US-009507513-1208USA003764

PATIENT
  Age: 1 Day
  Sex: Male
  Weight: 2.62 kg

DRUGS (2)
  1. ISENTRESS [Suspect]
     Dosage: 800 MG, QD
     Route: 064
     Dates: start: 20090707
  2. COMBIVIR [Suspect]
     Indication: HIV INFECTION
     Dosage: 2 DF, QD
     Route: 064
     Dates: start: 20090707

REACTIONS (6)
  - Low set ears [Recovered/Resolved]
  - Microstomia [Not Recovered/Not Resolved]
  - Nose deformity [Recovered/Resolved]
  - Foetal exposure during pregnancy [Recovered/Resolved]
  - Facial asymmetry [Not Recovered/Not Resolved]
  - Chromosomal mutation [Not Recovered/Not Resolved]
